FAERS Safety Report 11195065 (Version 2)
Quarter: 2017Q1

REPORT INFORMATION
  Report Type: Spontaneous
  Country: US (occurrence: US)
  Receive Date: 20150617
  Receipt Date: 20170315
  Transmission Date: 20170428
  Serious: Yes (Other)
  Sender: FDA-Public Use
  Company Number: US-ELI_LILLY_AND_COMPANY-US201506004178

PATIENT
  Age: 33 Year
  Sex: Female

DRUGS (9)
  1. CYMBALTA [Suspect]
     Active Substance: DULOXETINE HYDROCHLORIDE
     Dosage: 30 MG, QD
     Route: 065
     Dates: start: 20130621
  2. LORTAB [Concomitant]
     Active Substance: ACETAMINOPHEN\HYDROCODONE BITARTRATE
     Indication: PRODUCT USED FOR UNKNOWN INDICATION
     Dosage: 1 DF, DAILY PRN
     Route: 048
  3. DULOXETINE HYDROCHLORIDE. [Suspect]
     Active Substance: DULOXETINE HYDROCHLORIDE
     Indication: PAIN
     Dosage: 30 MG, QD
     Route: 048
  4. CYMBALTA [Suspect]
     Active Substance: DULOXETINE HYDROCHLORIDE
     Dosage: 30 MG, TWICE A WEEK
     Route: 048
  5. CYMBALTA [Suspect]
     Active Substance: DULOXETINE HYDROCHLORIDE
     Dosage: 30 MG, EVERY OTHER DAY
     Route: 048
  6. ZANAFLEX [Concomitant]
     Active Substance: TIZANIDINE HYDROCHLORIDE
     Indication: PRODUCT USED FOR UNKNOWN INDICATION
     Dosage: 4 MG, QD
     Route: 048
  7. CYMBALTA [Suspect]
     Active Substance: DULOXETINE HYDROCHLORIDE
     Indication: PAIN
     Dosage: 60 MG, QD
     Route: 048
  8. FLEXERIL [Concomitant]
     Active Substance: CYCLOBENZAPRINE HYDROCHLORIDE
     Indication: PRODUCT USED FOR UNKNOWN INDICATION
     Dosage: 10 MG, EVERY 8 HOURS PRN
     Route: 048
  9. MOBIC [Concomitant]
     Active Substance: MELOXICAM
     Indication: PRODUCT USED FOR UNKNOWN INDICATION
     Dosage: 7.5 MG, BID PRN
     Route: 048

REACTIONS (34)
  - Dysphoria [Unknown]
  - Constipation [Unknown]
  - Affect lability [Unknown]
  - Suicidal ideation [Unknown]
  - Tinnitus [Unknown]
  - Vertigo [Unknown]
  - Vomiting [Unknown]
  - Diarrhoea [Unknown]
  - Irritability [Unknown]
  - Drug withdrawal syndrome [Unknown]
  - Hypomania [Unknown]
  - Fatigue [Unknown]
  - Visual acuity reduced [Unknown]
  - Nausea [Unknown]
  - Sleep disorder [Unknown]
  - Paraesthesia [Unknown]
  - Sensory disturbance [Unknown]
  - Confusional state [Unknown]
  - Tremor [Unknown]
  - Dizziness [Unknown]
  - Lethargy [Unknown]
  - Depression [Unknown]
  - Mood swings [Unknown]
  - Headache [Unknown]
  - Insomnia [Unknown]
  - Cholelithiasis [Unknown]
  - Pain [Unknown]
  - Agitation [Unknown]
  - Anxiety [Unknown]
  - Somnolence [Unknown]
  - Somnolence [Unknown]
  - Nightmare [Unknown]
  - Hyperhidrosis [Unknown]
  - Drug dose omission [Unknown]

NARRATIVE: CASE EVENT DATE: 20130621
